FAERS Safety Report 5371636-9 (Version None)
Quarter: 2007Q2

REPORT INFORMATION
  Report Type: 
  Country: None (occurrence: None)
  Receive Date: 20070627
  Receipt Date: 20070615
  Transmission Date: 20071010
  Serious: Yes (Other)
  Sender: FDA-Public Use
  Company Number: PHBS2007CN10204

PATIENT
  Age: 41 Year
  Sex: Female

DRUGS (1)
  1. ZELMAC [Suspect]
     Indication: ABDOMINAL PAIN
     Dosage: 6 MG, BID
     Route: 048
     Dates: start: 20070326, end: 20070408

REACTIONS (3)
  - CARDIAC DISCOMFORT [None]
  - DYSPNOEA [None]
  - MYOCARDIAL ISCHAEMIA [None]
